FAERS Safety Report 12643480 (Version 4)
Quarter: 2016Q4

REPORT INFORMATION
  Report Type: Spontaneous
  Country: IT (occurrence: IT)
  Receive Date: 20160811
  Receipt Date: 20161021
  Transmission Date: 20170207
  Serious: Yes (Hospitalization)
  Sender: FDA-Public Use
  Company Number: IT-TEVA-680348ACC

PATIENT
  Age: 76 Year
  Sex: Male

DRUGS (13)
  1. BACITRACIN W/NEOMYCIN SULFATE [Suspect]
     Active Substance: BACITRACIN\NEOMYCIN SULFATE
     Indication: DIARRHOEA
     Route: 065
  2. NITROGLYCERIN. [Concomitant]
     Active Substance: NITROGLYCERIN
  3. HEPARIN [Suspect]
     Active Substance: HEPARIN SODIUM
     Indication: ATRIAL FIBRILLATION
     Dosage: 4000 IU (INTERNATIONAL UNIT) DAILY;
     Route: 058
  4. WARFARIN [Interacting]
     Active Substance: WARFARIN
     Indication: ANTICOAGULANT THERAPY
     Dosage: 5 MILLIGRAM DAILY;
  5. ACETYLSALICYLIC ACID [Interacting]
     Active Substance: ASPIRIN
     Indication: ANTICOAGULANT THERAPY
  6. AMIODARONE HYDROCLORIDE [Suspect]
     Active Substance: AMIODARONE HYDROCHLORIDE
     Dosage: 200 MILLIGRAM DAILY;
     Route: 065
  7. SPIRONOLACTONE. [Concomitant]
     Active Substance: SPIRONOLACTONE
  8. BACTRIM [Concomitant]
     Active Substance: SULFAMETHOXAZOLE\TRIMETHOPRIM
     Indication: DIARRHOEA
  9. AMIODARONE HYDROCLORIDE [Suspect]
     Active Substance: AMIODARONE HYDROCHLORIDE
     Indication: ATRIAL FIBRILLATION
     Route: 042
  10. RAMIPRIL. [Concomitant]
     Active Substance: RAMIPRIL
  11. LORAZEPAM. [Concomitant]
     Active Substance: LORAZEPAM
  12. AMIODARONE HYDROCLORIDE [Suspect]
     Active Substance: AMIODARONE HYDROCHLORIDE
  13. PANTOPRAZOLE [Concomitant]
     Active Substance: PANTOPRAZOLE SODIUM

REACTIONS (3)
  - Drug interaction [Recovered/Resolved]
  - Incorrect dosage administered [Recovered/Resolved]
  - International normalised ratio increased [Recovered/Resolved]
